FAERS Safety Report 5323930-5 (Version None)
Quarter: 2007Q2

REPORT INFORMATION
  Report Type: 
  Country: None (occurrence: None)
  Receive Date: 20070514
  Receipt Date: 20070503
  Transmission Date: 20071010
  Serious: Yes (Other)
  Sender: FDA-Public Use
  Company Number: US-SANOFI-SYNTHELABO-A03200702915

PATIENT
  Age: 64 Year
  Sex: Female

DRUGS (3)
  1. LEUCOVORIN CALCIUM [Suspect]
     Indication: COLON CANCER RECURRENT
     Route: 042
     Dates: start: 20070306, end: 20070306
  2. FLUOROURACIL [Suspect]
     Indication: COLON CANCER RECURRENT
     Route: 042
     Dates: start: 20070306, end: 20070306
  3. OXALIPLATIN [Suspect]
     Indication: COLON CANCER RECURRENT
     Route: 042
     Dates: start: 20070306, end: 20070306

REACTIONS (10)
  - BLEPHAROSPASM [None]
  - DYSARTHRIA [None]
  - DYSPHAGIA [None]
  - FEELING JITTERY [None]
  - HYPOAESTHESIA [None]
  - NERVE INJURY [None]
  - SPEECH DISORDER [None]
  - TEMPERATURE INTOLERANCE [None]
  - THROAT TIGHTNESS [None]
  - VISION BLURRED [None]
